FAERS Safety Report 9207636 (Version 1)
Quarter: 2013Q2

REPORT INFORMATION
  Report Type: Spontaneous
  Country: US (occurrence: None)
  Receive Date: 20130402
  Receipt Date: 20130402
  Transmission Date: 20140414
  Serious: No
  Sender: FDA-Public Use
  Company Number: None

PATIENT
  Age: 54 Year
  Sex: Female
  Weight: 63.5 kg

DRUGS (2)
  1. CIPROFLOXACIN [Suspect]
     Indication: RHINITIS
     Dosage: 2X^S DAY
     Route: 048
     Dates: start: 20130220, end: 20130225
  2. CIPROFLOXACIN [Suspect]
     Indication: STAPHYLOCOCCAL INFECTION
     Dosage: 2X^S DAY
     Route: 048
     Dates: start: 20130220, end: 20130225

REACTIONS (2)
  - Arthralgia [None]
  - Musculoskeletal pain [None]
